FAERS Safety Report 4305130-0 (Version None)
Quarter: 2004Q1

REPORT INFORMATION
  Report Type: 
  Country: None (occurrence: None)
  Receive Date: 20040223
  Receipt Date: 20031114
  Transmission Date: 20041129
  Serious: No
  Sender: FDA-Public Use
  Company Number: SU-2003-001924

PATIENT
  Age: 73 Year
  Sex: Male
  Weight: 57.1532 kg

DRUGS (7)
  1. BENICAR [Suspect]
     Indication: HYPERTENSION
     Dosage: 20 MG QD PO
     Route: 048
     Dates: start: 20031009, end: 20031030
  2. HUMALOG [Concomitant]
  3. LANTUS [Concomitant]
  4. VITAMIN B-12 [Concomitant]
  5. LEVOTHYROXINE SODIUM [Concomitant]
  6. VITAMIN CAP [Concomitant]
  7. ASPIRIN [Concomitant]

REACTIONS (1)
  - ARTHRALGIA [None]
